FAERS Safety Report 5358133-1 (Version None)
Quarter: 2007Q2

REPORT INFORMATION
  Report Type: 
  Country: None (occurrence: None)
  Receive Date: 20070530
  Receipt Date: 20070104
  Transmission Date: 20071010
  Serious: Yes (Hospitalization)
  Sender: FDA-Public Use
  Company Number: US200605006240

PATIENT
  Age: 56 Year
  Sex: Male
  Weight: 106.6 kg

DRUGS (2)
  1. ZYPREXA [Suspect]
     Indication: POST-TRAUMATIC STRESS DISORDER
     Dosage: 5 MG, DAILY (1/D)
     Dates: start: 19990101
  2. BUPROPION HCL [Concomitant]

REACTIONS (3)
  - CHEST PAIN [None]
  - DIABETES MELLITUS [None]
  - WEIGHT INCREASED [None]
